FAERS Safety Report 11564050 (Version 1)
Quarter: 2015Q3

REPORT INFORMATION
  Report Type: Spontaneous
  Country: BG (occurrence: BG)
  Receive Date: 20150928
  Receipt Date: 20150928
  Transmission Date: 20151125
  Serious: Yes (Hospitalization)
  Sender: FDA-Public Use
  Company Number: BG-MYLANLABS-2015M1032552

PATIENT

DRUGS (1)
  1. OLANZAPINE. [Suspect]
     Active Substance: OLANZAPINE
     Indication: MAJOR DEPRESSION
     Route: 065

REACTIONS (7)
  - Leukocytosis [Unknown]
  - Rash generalised [Recovered/Resolved]
  - Lymphadenopathy [Unknown]
  - Transaminases increased [Recovered/Resolved]
  - Pyrexia [Unknown]
  - Eosinophilia [Unknown]
  - C-reactive protein increased [Unknown]
